FAERS Safety Report 9729479 (Version 1)
Quarter: 2013Q4

REPORT INFORMATION
  Report Type: Spontaneous
  Country: US (occurrence: US)
  Receive Date: 20131204
  Receipt Date: 20131204
  Transmission Date: 20140711
  Serious: No
  Sender: FDA-Public Use
  Company Number: US-GILEAD-2009-0021551

PATIENT
  Age: 79 Year
  Sex: Female

DRUGS (10)
  1. LETAIRIS [Suspect]
     Indication: PULMONARY ARTERIAL HYPERTENSION
     Route: 048
     Dates: start: 20090425
  2. LETAIRIS [Suspect]
     Route: 048
  3. REVATIO [Concomitant]
  4. COUMADIN [Concomitant]
  5. LASIX [Concomitant]
  6. LIPITOR [Concomitant]
  7. POTASSIUM [Concomitant]
  8. PROTONIX [Concomitant]
  9. CENTRUM [Concomitant]
  10. CITRACAL [Concomitant]

REACTIONS (2)
  - Local swelling [Recovering/Resolving]
  - Nasal congestion [Recovering/Resolving]
